FAERS Safety Report 8554454-X (Version None)
Quarter: 2012Q3

REPORT INFORMATION
  Report Type: 
  Country: None (occurrence: None)
  Receive Date: 20120731
  Receipt Date: 20120723
  Transmission Date: 20120928
  Serious: Yes (Hospitalization, Other)
  Sender: FDA-Public Use
  Company Number: US-009507513-1207USA009775

PATIENT

DRUGS (7)
  1. FOLIC ACID [Concomitant]
  2. ZOCOR [Suspect]
     Dosage: UNK
     Route: 048
  3. PREDNISOLONE [Suspect]
     Dosage: UNK
     Route: 048
  4. ALBUTEROL SULATE [Concomitant]
     Dosage: UNK, PRN
     Route: 055
  5. CYANOCOBALAMIN [Concomitant]
  6. AMOXICILLIN [Concomitant]
  7. PRILOSEC [Concomitant]
     Route: 048

REACTIONS (6)
  - HYPERTENSION [None]
  - TACHYCARDIA [None]
  - RHABDOMYOLYSIS [None]
  - HYPERKALAEMIA [None]
  - RENAL FAILURE ACUTE [None]
  - URINE OUTPUT DECREASED [None]
